FAERS Safety Report 6893376-7 (Version None)
Quarter: 2010Q3

REPORT INFORMATION
  Report Type: 
  Country: None (occurrence: None)
  Receive Date: 20100731
  Receipt Date: 20090820
  Transmission Date: 20110219
  Serious: No
  Sender: FDA-Public Use
  Company Number: US-PFIZER INC-2009259567

PATIENT
  Sex: Female
  Weight: 73.923 kg

DRUGS (2)
  1. LIPITOR [Suspect]
     Indication: BLOOD CHOLESTEROL INCREASED
     Dosage: 20 MG, 1X/DAY
  2. ALTACE [Concomitant]

REACTIONS (3)
  - LIMB DISCOMFORT [None]
  - MUSCLE SPASMS [None]
  - MUSCLE STRAIN [None]
